FAERS Safety Report 8353010-6 (Version None)
Quarter: 2012Q2

REPORT INFORMATION
  Report Type: 
  Country: None (occurrence: None)
  Receive Date: 20120511
  Receipt Date: 20120502
  Transmission Date: 20120825
  Serious: Yes (Hospitalization)
  Sender: FDA-Public Use
  Company Number: US-BRISTOL-MYERS SQUIBB COMPANY-15665045

PATIENT
  Age: 49 Year
  Sex: Male

DRUGS (4)
  1. HYDROCHLOROTHIAZIDE [Concomitant]
     Dates: start: 20110218, end: 20110410
  2. METOPROLOL TARTRATE [Concomitant]
     Dates: start: 20110218, end: 20110410
  3. IPILIMUMAB [Suspect]
     Indication: MALIGNANT MELANOMA
     Dosage: INTRP ON 15MAR11
     Route: 042
     Dates: start: 20110315
  4. BENICAR [Concomitant]
     Dates: start: 20110218

REACTIONS (2)
  - CLOSTRIDIAL INFECTION [None]
  - MALAISE [None]
